FAERS Safety Report 24461742 (Version 1)
Quarter: 2024Q4

REPORT INFORMATION
  Report Type: Spontaneous
  Country: JP (occurrence: JP)
  Receive Date: 20241018
  Receipt Date: 20241018
  Transmission Date: 20250114
  Serious: Yes (Other)
  Sender: JUBILANT
  Company Number: None

PATIENT
  Age: 41 Year
  Sex: Female

DRUGS (8)
  1. SPIRONOLACTONE [Suspect]
     Active Substance: SPIRONOLACTONE
     Indication: Renal failure
     Dosage: 25 (ADDED ON HOSPITAL DAY 18)
     Route: 065
  2. SPIRONOLACTONE [Suspect]
     Active Substance: SPIRONOLACTONE
     Indication: Malignant hypertension
  3. OLMESARTAN MEDOXOMIL [Suspect]
     Active Substance: OLMESARTAN MEDOXOMIL
     Indication: Malignant hypertension
     Dosage: 10, 20, 30, 40 (LOW DOSE STARTED ON HOSPITAL DAY 4 AND DOSAGE WAS GRADUALLY INCREASED TO THE MAXIMUM
     Route: 065
  4. OLMESARTAN MEDOXOMIL [Suspect]
     Active Substance: OLMESARTAN MEDOXOMIL
     Indication: Renal failure
  5. ALISKIREN [Suspect]
     Active Substance: ALISKIREN
     Indication: Malignant hypertension
     Dosage: 150 MG, ONCE PER DAY, STARTED ON HOSPITAL DAY 4
     Route: 065
  6. ALISKIREN [Suspect]
     Active Substance: ALISKIREN
     Indication: Renal failure
  7. NIFEDIPINE [Concomitant]
     Active Substance: NIFEDIPINE
     Indication: Malignant hypertension
     Dosage: 40, 60, 40 (INCREASED TO THE MAXIMUM DOSAGE ON HOSPITAL DAY 3)
     Route: 065
  8. CARVEDILOL [Concomitant]
     Active Substance: CARVEDILOL
     Indication: Malignant hypertension
     Dosage: 20 (STARTED ON DAY 15)
     Route: 065

REACTIONS (1)
  - Hyperkalaemia [Unknown]
